FAERS Safety Report 9469669 (Version 2)
Quarter: 2013Q3

REPORT INFORMATION
  Report Type: Spontaneous
  Country: IT (occurrence: IT)
  Receive Date: 20130822
  Receipt Date: 20130830
  Transmission Date: 20140515
  Serious: Yes (Death, Hospitalization)
  Sender: FDA-Public Use
  Company Number: IT-ACCORD-019033

PATIENT
  Sex: Male
  Weight: 75 kg

DRUGS (2)
  1. TRAMADOL [Suspect]
  2. PROPOFOL [Suspect]

REACTIONS (7)
  - Toxicity to various agents [Fatal]
  - Self-medication [Unknown]
  - Dyspnoea [Unknown]
  - Cyanosis [Unknown]
  - Atrial fibrillation [Unknown]
  - Acidosis [Unknown]
  - Heart injury [Unknown]
